FAERS Safety Report 7360322-1 (Version None)
Quarter: 2011Q1

REPORT INFORMATION
  Report Type: 
  Country: None (occurrence: None)
  Receive Date: 20110318
  Receipt Date: 20100908
  Transmission Date: 20110831
  Serious: Yes (Other)
  Sender: FDA-Public Use
  Company Number: US-BAYER-201018551NA

PATIENT
  Sex: Female
  Weight: 111.11 kg

DRUGS (6)
  1. YAZ [Suspect]
     Indication: DYSMENORRHOEA
     Route: 048
  2. FUROSEMIDE [Concomitant]
     Dosage: UNK
     Route: 048
  3. ACIPHEX [Concomitant]
  4. EFFEXOR XR [Concomitant]
     Dosage: UNK UNK, QD
  5. YASMIN [Suspect]
     Indication: DYSMENORRHOEA
     Dosage: UNK UNK, QD
     Route: 048
     Dates: start: 20030101, end: 20070101
  6. NAPROXEN [Concomitant]

REACTIONS (6)
  - OEDEMA PERIPHERAL [None]
  - MENORRHAGIA [None]
  - NEPHROLITHIASIS [None]
  - THROMBOPHLEBITIS SUPERFICIAL [None]
  - PAIN IN EXTREMITY [None]
  - PAIN [None]
